FAERS Safety Report 13976876 (Version 1)
Quarter: 2017Q3

REPORT INFORMATION
  Report Type: Spontaneous
  Country: US (occurrence: US)
  Receive Date: 20170915
  Receipt Date: 20170915
  Transmission Date: 20171128
  Serious: Yes (Hospitalization)
  Sender: FDA-Public Use
  Company Number: US-ROCHE-724970

PATIENT
  Sex: Female
  Weight: 78.6 kg

DRUGS (10)
  1. ATARAX [Concomitant]
     Active Substance: HYDROXYZINE HYDROCHLORIDE
     Route: 065
  2. HERCEPTIN [Suspect]
     Active Substance: TRASTUZUMAB
     Indication: BREAST CANCER METASTATIC
     Dosage: FORM: INFUSION, DOSE: 489 MG, LAST DOSE ON 12 AUGUST 2010.
     Route: 042
  3. ALLEGRA [Concomitant]
     Active Substance: FEXOFENADINE HYDROCHLORIDE
     Route: 065
  4. COMPAZINE [Concomitant]
     Active Substance: PROCHLORPERAZINE MALEATE
     Dosage: FREQUENCY: Q6 HOUR PRN
     Route: 048
  5. FOLIC ACID. [Concomitant]
     Active Substance: FOLIC ACID
     Dosage: FREQUENCY: DAILY
     Route: 065
  6. MVI [Concomitant]
     Active Substance: VITAMINS
     Route: 048
  7. ATIVAN [Concomitant]
     Active Substance: LORAZEPAM
  8. TYLENOL [Concomitant]
     Active Substance: ACETAMINOPHEN
     Dosage: PRN
     Route: 065
  9. AZULFIDINE [Concomitant]
     Active Substance: SULFASALAZINE
     Route: 048
  10. ZOFRAN [Concomitant]
     Active Substance: ONDANSETRON HYDROCHLORIDE
     Dosage: FREQUENCY: Q 8 HR PRN 3 DAYS AFTER CHEMOTHERAPY
     Route: 048

REACTIONS (1)
  - Herpes zoster [Not Recovered/Not Resolved]
